FAERS Safety Report 6076035-2 (Version None)
Quarter: 2009Q1

REPORT INFORMATION
  Report Type: 
  Country: None (occurrence: None)
  Receive Date: 20090212
  Receipt Date: 20090210
  Transmission Date: 20090719
  Serious: Yes (Life-Threatening)
  Sender: FDA-Public Use
  Company Number: JP-ABBOTT-09P-087-0500616-00

PATIENT
  Sex: Female
  Weight: 54 kg

DRUGS (7)
  1. SEVOFRANE [Suspect]
     Indication: INDUCTION OF ANAESTHESIA
     Dosage: 5%
     Route: 055
     Dates: start: 20070904, end: 20070904
  2. ATROPINE SULFATE [Concomitant]
     Indication: INDUCTION OF ANAESTHESIA
     Route: 042
     Dates: start: 20070904, end: 20070904
  3. ATROPINE SULFATE [Concomitant]
  4. PROPOFOL [Concomitant]
     Indication: INDUCTION OF ANAESTHESIA
     Route: 042
     Dates: start: 20070904, end: 20070904
  5. VECURONIUM BROMIDE [Concomitant]
     Indication: ENDOTRACHEAL INTUBATION
     Route: 042
     Dates: start: 20070904, end: 20070904
  6. DIAZEPAM [Concomitant]
     Indication: PREMEDICATION
     Route: 048
     Dates: start: 20070904, end: 20070904
  7. AMLODIN [Concomitant]
     Indication: HYPERTENSION
     Route: 048
     Dates: start: 20040101, end: 20070904

REACTIONS (2)
  - ATRIOVENTRICULAR BLOCK COMPLETE [None]
  - MYOCARDIAL ISCHAEMIA [None]
